FAERS Safety Report 5256331-9 (Version None)
Quarter: 2007Q1

REPORT INFORMATION
  Report Type: 
  Country: None (occurrence: None)
  Receive Date: 20070306
  Receipt Date: 20070227
  Transmission Date: 20070707
  Serious: Yes (Death)
  Sender: FDA-Public Use
  Company Number: NO-ROCHE-461309

PATIENT
  Age: 49 Year
  Sex: Female

DRUGS (1)
  1. XELODA [Suspect]
     Dosage: FORMULATION: FILM COATED TABLETS
     Route: 048
     Dates: start: 20060628, end: 20060719

REACTIONS (5)
  - ADVERSE EVENT [None]
  - DIARRHOEA [None]
  - HEPATIC FAILURE [None]
  - PANCYTOPENIA [None]
  - PYREXIA [None]
